FAERS Safety Report 12742201 (Version 1)
Quarter: 2016Q3

REPORT INFORMATION
  Report Type: Spontaneous
  Country: NO (occurrence: NO)
  Receive Date: 20160914
  Receipt Date: 20160914
  Transmission Date: 20161109
  Serious: Yes (Other)
  Sender: FDA-Public Use
  Company Number: NO-TEVA-690519ACC

PATIENT
  Age: 95 Year
  Sex: Female
  Weight: 54 kg

DRUGS (12)
  1. ATENOLOL. [Concomitant]
     Active Substance: ATENOLOL
     Indication: HYPERTENSION
     Dosage: 25 MILLIGRAM DAILY; 25 MG 1X1 UNTIL 20160814, THEN INCREASED TO 2X1
     Route: 048
  2. ARTHROTEC [Concomitant]
     Active Substance: DICLOFENAC SODIUM\MISOPROSTOL
     Dosage: 3 DOSAGE FORMS DAILY;
     Route: 048
     Dates: start: 20160817, end: 20160818
  3. TRAMADOL. [Suspect]
     Active Substance: TRAMADOL
     Indication: PAIN
     Dosage: 200 MILLIGRAM DAILY; DOSING: 100 MG PROLONGED RELEASE X 2 + 50 MG IMMEDIATE RELEASE AS NEEDED.
     Route: 048
     Dates: start: 20160814, end: 20160817
  4. SELEXID [Suspect]
     Active Substance: AMDINOCILLIN PIVOXIL HYDROCHLORIDE
     Dosage: 600 MILLIGRAM DAILY;
     Route: 048
     Dates: start: 20160814, end: 20160817
  5. VALIUM [Concomitant]
     Active Substance: DIAZEPAM
     Route: 048
     Dates: start: 20160816, end: 20160816
  6. LIPITOR [Concomitant]
     Active Substance: ATORVASTATIN CALCIUM
     Dosage: 10 MILLIGRAM DAILY;
     Dates: end: 20160818
  7. DIOVAN [Concomitant]
     Active Substance: VALSARTAN
     Dosage: 40 MILLIGRAM DAILY;
     Route: 048
  8. ELIQUIS [Concomitant]
     Active Substance: APIXABAN
     Indication: ATRIAL FIBRILLATION
     Dosage: 5 MILLIGRAM DAILY;
     Route: 048
  9. PARACET [Concomitant]
     Active Substance: ACETAMINOPHEN
     Dosage: 4 GRAM DAILY;
     Route: 048
  10. LACTULOSE. [Concomitant]
     Active Substance: LACTULOSE
     Dosage: 30 ML DAILY;
     Route: 048
     Dates: start: 20160818
  11. TRIOBE [Concomitant]
     Dosage: 1 DOSAGE FORMS DAILY;
     Route: 048
  12. AFIPRAN [Concomitant]
     Active Substance: METOCLOPRAMIDE HYDROCHLORIDE
     Indication: NAUSEA
     Dosage: 30 MILLIGRAM DAILY;
     Dates: start: 20160815, end: 20160819

REACTIONS (1)
  - Hyponatraemia [Recovered/Resolved]

NARRATIVE: CASE EVENT DATE: 20160818
